FAERS Safety Report 13353480 (Version 1)
Quarter: 2017Q1

REPORT INFORMATION
  Report Type: Spontaneous
  Country: US (occurrence: US)
  Receive Date: 20170321
  Receipt Date: 20170321
  Transmission Date: 20170429
  Serious: Yes (Other)
  Sender: FDA-Public Use
  Company Number: US-ACCORD-049222

PATIENT
  Age: 36 Year
  Sex: Female

DRUGS (2)
  1. PREDNISONE. [Suspect]
     Active Substance: PREDNISONE
     Indication: LUPUS NEPHRITIS
  2. MYCOPHENOLIC ACID. [Suspect]
     Active Substance: MYCOPHENOLIC ACID
     Indication: LUPUS NEPHRITIS
     Dosage: PATIENT WAS STARTED AT A DOSE OF 2 G/DAY

REACTIONS (2)
  - Gastrointestinal disorder [Unknown]
  - Focal segmental glomerulosclerosis [Recovered/Resolved]
